FAERS Safety Report 21365589 (Version 1)
Quarter: 2022Q3

REPORT INFORMATION
  Report Type: Spontaneous
  Country: US (occurrence: US)
  Receive Date: 20220922
  Receipt Date: 20220922
  Transmission Date: 20221027
  Serious: Yes (Hospitalization, Other)
  Sender: FDA-Public Use
  Company Number: US-GLAXOSMITHKLINE-US2022GSK133706

PATIENT

DRUGS (9)
  1. BUPROPION [Suspect]
     Active Substance: BUPROPION
     Indication: Product used for unknown indication
     Dosage: 300 MG, 1D
     Route: 064
  2. DIAZEPAM [Suspect]
     Active Substance: DIAZEPAM
     Indication: Muscle spasticity
     Dosage: 2.5 MG, 1D AS NEEDED
     Route: 064
  3. BACLOFEN [Suspect]
     Active Substance: BACLOFEN
     Indication: Muscle spasticity
     Dosage: 30 G, QID
     Route: 064
  4. OXYBUTYNIN [Suspect]
     Active Substance: OXYBUTYNIN
     Indication: Product used for unknown indication
     Dosage: 5 MG, 1D
     Route: 064
  5. ESCITALOPRAM [Suspect]
     Active Substance: ESCITALOPRAM OXALATE
     Indication: Product used for unknown indication
     Dosage: 10 MG, 1D
     Route: 064
  6. BACLOFEN [Concomitant]
     Active Substance: BACLOFEN
     Indication: Drug withdrawal syndrome neonatal
     Dosage: 0.125 MG/KG EVERY 6 HRS
     Route: 048
  7. BACLOFEN [Concomitant]
     Active Substance: BACLOFEN
     Dosage: 0.125 MG/KG EVERY 8 HRS
     Route: 048
  8. BACLOFEN [Concomitant]
     Active Substance: BACLOFEN
     Dosage: 0.125 MG/KG EVERY 12 HRS
     Route: 048
  9. BACLOFEN [Concomitant]
     Active Substance: BACLOFEN
     Dosage: 0.125 MG/KG EVERY 24 HRS
     Route: 048

REACTIONS (9)
  - Extensor plantar response [Unknown]
  - Posturing [Unknown]
  - Infantile apnoea [Unknown]
  - Torticollis [Recovered/Resolved]
  - Plagiocephaly [Recovered/Resolved]
  - Premature baby [Unknown]
  - Foetal distress syndrome [Unknown]
  - Movement disorder [Unknown]
  - Foetal exposure during pregnancy [Unknown]
